FAERS Safety Report 18460430 (Version 2)
Quarter: 2020Q4

REPORT INFORMATION
  Report Type: Report from Study
  Country: None (occurrence: CO)
  Receive Date: 20201103
  Receipt Date: 20201204
  Transmission Date: 20210114
  Serious: Yes (Hospitalization, Other)
  Sender: FDA-Public Use
  Company Number: CO-ABBVIE-20K-036-3543077-00

PATIENT
  Sex: Male
  Weight: 76 kg

DRUGS (2)
  1. HUMIRA [Suspect]
     Active Substance: ADALIMUMAB
     Indication: ANKYLOSING SPONDYLITIS
     Route: 058
     Dates: end: 20200208
  2. HUMIRA [Suspect]
     Active Substance: ADALIMUMAB
     Indication: ANKYLOSING SPONDYLITIS
     Route: 058
     Dates: start: 20150904

REACTIONS (17)
  - Cerebral haemorrhage [Recovering/Resolving]
  - Intracranial infection [Recovering/Resolving]
  - Hypoaesthesia oral [Recovering/Resolving]
  - Pain in extremity [Not Recovered/Not Resolved]
  - Intracranial mass [Recovering/Resolving]
  - Blindness [Recovering/Resolving]
  - Spinal pain [Recovering/Resolving]
  - Tonsillitis [Recovering/Resolving]
  - Snoring [Recovered/Resolved]
  - Noninfective encephalitis [Recovering/Resolving]
  - Meningitis [Recovering/Resolving]
  - Headache [Recovering/Resolving]
  - Oropharyngeal pain [Recovering/Resolving]
  - Pharyngitis [Recovering/Resolving]
  - Seizure [Recovering/Resolving]
  - Loss of consciousness [Recovering/Resolving]
  - Gait disturbance [Not Recovered/Not Resolved]

NARRATIVE: CASE EVENT DATE: 202008
